FAERS Safety Report 15245709 (Version 1)
Quarter: 2018Q3

REPORT INFORMATION
  Report Type: Spontaneous
  Country: AU (occurrence: AU)
  Receive Date: 20180806
  Receipt Date: 20180806
  Transmission Date: 20181010
  Serious: Yes (Other)
  Sender: FDA-Public Use
  Company Number: PHHY2018AU059551

PATIENT
  Age: 76 Year
  Sex: Female

DRUGS (1)
  1. FLUTICASONE. [Suspect]
     Active Substance: FLUTICASONE
     Indication: BRONCHIECTASIS
     Dosage: 1000 UG, QD
     Route: 055

REACTIONS (7)
  - Glucocorticoid deficiency [Unknown]
  - Infective exacerbation of bronchiectasis [Unknown]
  - Hyponatraemia [Recovered/Resolved]
  - Fatigue [Unknown]
  - Presyncope [Unknown]
  - Adrenal insufficiency [Unknown]
  - Nausea [Unknown]
